FAERS Safety Report 6967707-3 (Version None)
Quarter: 2010Q3

REPORT INFORMATION
  Report Type: 
  Country: None (occurrence: None)
  Receive Date: 20100907
  Receipt Date: 20100830
  Transmission Date: 20110219
  Serious: No
  Sender: FDA-Public Use
  Company Number: US-PFIZER INC-2010109505

PATIENT
  Age: 78 Year
  Sex: Male

DRUGS (5)
  1. CELEBREX [Suspect]
     Dosage: 200 MG, 2X/DAY
  2. QUINAPRIL [Concomitant]
     Dosage: 10, UNK
  3. NIASPAN [Concomitant]
     Dosage: UNK
  4. ACETYLSALICYLIC ACID [Concomitant]
     Dosage: UNK
  5. SITAGLIPTIN [Concomitant]
     Dosage: UNK

REACTIONS (1)
  - VISION BLURRED [None]
